FAERS Safety Report 24465625 (Version 1)
Quarter: 2024Q4

REPORT INFORMATION
  Report Type: Report from Study
  Country: US (occurrence: US)
  Receive Date: 20241018
  Receipt Date: 20241018
  Transmission Date: 20250114
  Serious: No
  Sender: ROCHE
  Company Number: US-ROCHE-3532032

PATIENT
  Age: 68 Year
  Sex: Male
  Weight: 68.04 kg

DRUGS (7)
  1. XOLAIR [Suspect]
     Active Substance: OMALIZUMAB
     Indication: Urticaria
     Dosage: YES
     Route: 058
     Dates: start: 20231114
  2. XOLAIR [Suspect]
     Active Substance: OMALIZUMAB
     Indication: Idiopathic urticaria
  3. FEXOFENADINE HYDROCHLORIDE [Concomitant]
     Active Substance: FEXOFENADINE HYDROCHLORIDE
     Indication: Urticaria
     Dosage: 2 180 MG TABLETS IN THE MORNING
     Route: 048
     Dates: start: 202308
  4. CETIRIZINE HYDROCHLORIDE [Concomitant]
     Active Substance: CETIRIZINE HYDROCHLORIDE
     Indication: Urticaria
     Route: 048
     Dates: start: 202308
  5. FAMOTIDINE [Concomitant]
     Active Substance: FAMOTIDINE
     Indication: Urticaria
     Route: 048
     Dates: start: 202308
  6. MONTELUKAST [Concomitant]
     Active Substance: MONTELUKAST
     Indication: Urticaria
     Route: 048
     Dates: start: 202308
  7. FINASTERIDE [Concomitant]
     Active Substance: FINASTERIDE
     Route: 048
     Dates: start: 2004

REACTIONS (2)
  - Drug ineffective [Unknown]
  - No adverse event [Unknown]

NARRATIVE: CASE EVENT DATE: 20231114
